FAERS Safety Report 25516495 (Version 1)
Quarter: 2025Q3

REPORT INFORMATION
  Report Type: Spontaneous
  Country: US (occurrence: US)
  Receive Date: 20250704
  Receipt Date: 20250704
  Transmission Date: 20251021
  Serious: No
  Sender: RADIUS PHARM
  Company Number: US-RADIUS HEALTH INC.-2025US002261

PATIENT
  Sex: Female

DRUGS (2)
  1. TYMLOS [Suspect]
     Active Substance: ABALOPARATIDE
     Indication: Product used for unknown indication
     Route: 058
     Dates: start: 202502
  2. TYMLOS [Suspect]
     Active Substance: ABALOPARATIDE
     Route: 065

REACTIONS (5)
  - Viral infection [Unknown]
  - Somnolence [Unknown]
  - Heart rate increased [Not Recovered/Not Resolved]
  - Fatigue [Unknown]
  - Intentional product misuse [Not Recovered/Not Resolved]
